FAERS Safety Report 7313316-6 (Version None)
Quarter: 2011Q1

REPORT INFORMATION
  Report Type: 
  Country: None (occurrence: None)
  Receive Date: 20110225
  Receipt Date: 20101118
  Transmission Date: 20110831
  Serious: No
  Sender: FDA-Public Use
  Company Number: US-MYLANLABS-2010S1019279

PATIENT
  Age: 55 Year
  Sex: Female

DRUGS (4)
  1. MULTIVITAMIN [Concomitant]
  2. BENAZEPRIL HYDROCHLORIDE AND HYDROCHLOROTHIAZIDE [Concomitant]
  3. METFORMIN HCL [Suspect]
     Indication: BLOOD GLUCOSE
     Route: 048
     Dates: start: 20100920, end: 20101018
  4. METFORMIN HCL [Suspect]
     Indication: DIABETES MELLITUS
     Route: 048
     Dates: start: 20100920, end: 20101018

REACTIONS (2)
  - DRUG INEFFECTIVE [None]
  - BLOOD GLUCOSE INCREASED [None]
